FAERS Safety Report 7042122-5 (Version None)
Quarter: 2010Q4

REPORT INFORMATION
  Report Type: 
  Country: None (occurrence: None)
  Receive Date: 20101013
  Receipt Date: 20091203
  Transmission Date: 20110411
  Serious: No
  Sender: FDA-Public Use
  Company Number: US-ASTRAZENECA-2009SE30046

PATIENT
  Sex: Male
  Weight: 68 kg

DRUGS (2)
  1. SYMBICORT [Suspect]
     Indication: ASTHMA
     Dosage: 640 UG TOTAL DAILY DOSE
     Route: 055
     Dates: start: 20090101
  2. NEXIUM [Concomitant]

REACTIONS (1)
  - VISION BLURRED [None]
